FAERS Safety Report 7299198-X (Version None)
Quarter: 2011Q1

REPORT INFORMATION
  Report Type: 
  Country: None (occurrence: None)
  Receive Date: 20110217
  Receipt Date: 20110208
  Transmission Date: 20110831
  Serious: Yes (Hospitalization, Other)
  Sender: FDA-Public Use
  Company Number: BR-PFIZER INC-2010162279

PATIENT
  Age: 64 Year
  Sex: Male
  Weight: 65 kg

DRUGS (9)
  1. OMEPRAZOLE [Concomitant]
  2. PURAN T4 [Concomitant]
     Indication: HYPOTHYROIDISM
     Dosage: UNK
     Dates: start: 20070101
  3. ACETYLSALICYLIC ACID [Concomitant]
  4. INSULIN [Concomitant]
     Indication: DIABETES MELLITUS
     Dosage: UNK
     Dates: start: 19970101
  5. ENBREL [Concomitant]
     Indication: RHEUMATOID ARTHRITIS
     Dosage: UNK
     Dates: start: 20100607
  6. CYCLOSPORINE [Concomitant]
     Indication: RHEUMATOID ARTHRITIS
  7. LAMIVUDINE [Concomitant]
     Indication: PROPHYLAXIS
  8. CELEBRA [Suspect]
     Indication: RHEUMATOID ARTHRITIS
     Dosage: UNK
     Route: 048
     Dates: start: 20020101, end: 20070101
  9. ENALAPRIL [Concomitant]
     Indication: HYPERTENSION

REACTIONS (1)
  - MYOCARDIAL INFARCTION [None]
